FAERS Safety Report 5121272-4 (Version None)
Quarter: 2006Q4

REPORT INFORMATION
  Report Type: 
  Country: None (occurrence: None)
  Receive Date: 20061002
  Receipt Date: 20060919
  Transmission Date: 20070319
  Serious: Yes (Other)
  Sender: FDA-Public Use
  Company Number: 2005158137

PATIENT
  Age: 81 Year
  Sex: Female

DRUGS (1)
  1. NEURONTIN [Suspect]
     Indication: ILL-DEFINED DISORDER
     Dates: start: 20030101, end: 20040101

REACTIONS (8)
  - GINGIVAL RECESSION [None]
  - HAEMORRHAGE [None]
  - LOOSE TOOTH [None]
  - PERIODONTITIS [None]
  - RESORPTION BONE INCREASED [None]
  - TOOTH DISORDER [None]
  - TOOTH INJURY [None]
  - TOOTH LOSS [None]
